FAERS Safety Report 11455852 (Version 1)
Quarter: 2015Q3

REPORT INFORMATION
  Report Type: Spontaneous
  Country: US (occurrence: US)
  Receive Date: 20150903
  Receipt Date: 20150903
  Transmission Date: 20151125
  Serious: Yes (Hospitalization, Other)
  Sender: FDA-Public Use
  Company Number: US-BAYER-2015-413400

PATIENT
  Age: 64 Year
  Sex: Female

DRUGS (2)
  1. CLIMARA [Suspect]
     Active Substance: ESTRADIOL
     Indication: HOT FLUSH
     Dosage: UNK
     Route: 062
     Dates: start: 1989
  2. CLIMARA [Suspect]
     Active Substance: ESTRADIOL
     Indication: MIGRAINE
     Dosage: UNK
     Route: 062
     Dates: start: 20150723

REACTIONS (13)
  - Application site rash [None]
  - Application site reaction [None]
  - Product physical consistency issue [None]
  - Oesophageal operation [None]
  - Pancreatic steatosis [Recovered/Resolved]
  - Off label use [None]
  - Inappropriate schedule of drug administration [None]
  - Pancreatic disorder [Recovered/Resolved]
  - Cataract [Not Recovered/Not Resolved]
  - Clostridium difficile infection [None]
  - Product adhesion issue [None]
  - Pancreatitis [Recovered/Resolved]
  - Infection [None]

NARRATIVE: CASE EVENT DATE: 1995
